FAERS Safety Report 24181272 (Version 1)
Quarter: 2024Q3

REPORT INFORMATION
  Report Type: Spontaneous
  Country: US (occurrence: US)
  Receive Date: 20240807
  Receipt Date: 20240807
  Transmission Date: 20241017
  Serious: Yes (Other)
  Sender: DR REDDYS
  Company Number: US-DRL-USA-LIT/USA/24/0011217

PATIENT
  Age: 73 Year
  Sex: Female

DRUGS (19)
  1. ISOTRETINOIN [Suspect]
     Active Substance: ISOTRETINOIN
     Indication: Erosive pustular dermatosis
  2. ISOTRETINOIN [Suspect]
     Active Substance: ISOTRETINOIN
     Indication: Alopecia
  3. ISOTRETINOIN [Suspect]
     Active Substance: ISOTRETINOIN
     Indication: Staphylococcal infection
  4. DOXYCYCLINE [Suspect]
     Active Substance: DOXYCYCLINE\DOXYCYCLINE HYCLATE
     Indication: Erosive pustular dermatosis
  5. DOXYCYCLINE [Suspect]
     Active Substance: DOXYCYCLINE\DOXYCYCLINE HYCLATE
     Indication: Alopecia
  6. DOXYCYCLINE [Suspect]
     Active Substance: DOXYCYCLINE\DOXYCYCLINE HYCLATE
     Indication: Staphylococcal infection
  7. TRIAMCINOLONE [Concomitant]
     Active Substance: TRIAMCINOLONE
     Indication: Erosive pustular dermatosis
  8. TRIAMCINOLONE [Concomitant]
     Active Substance: TRIAMCINOLONE
     Indication: Staphylococcal infection
  9. TRIAMCINOLONE [Concomitant]
     Active Substance: TRIAMCINOLONE
     Indication: Alopecia
  10. CLOBETASOL [Concomitant]
     Active Substance: CLOBETASOL
     Indication: Erosive pustular dermatosis
  11. CLOBETASOL [Concomitant]
     Active Substance: CLOBETASOL
     Indication: Staphylococcal infection
  12. CLOBETASOL [Concomitant]
     Active Substance: CLOBETASOL
     Indication: Alopecia
  13. ACITRETIN [Concomitant]
     Active Substance: ACITRETIN
     Indication: Erosive pustular dermatosis
  14. ACITRETIN [Concomitant]
     Active Substance: ACITRETIN
     Indication: Staphylococcal infection
  15. ACITRETIN [Concomitant]
     Active Substance: ACITRETIN
     Indication: Alopecia
  16. AMIVANTAMAB [Concomitant]
     Active Substance: AMIVANTAMAB
     Indication: Lung neoplasm malignant
  17. PREDNISONE [Concomitant]
     Active Substance: PREDNISONE
     Indication: Erosive pustular dermatosis
  18. PREDNISONE [Concomitant]
     Active Substance: PREDNISONE
     Indication: Staphylococcal infection
  19. PREDNISONE [Concomitant]
     Active Substance: PREDNISONE
     Indication: Alopecia

REACTIONS (1)
  - Drug ineffective for unapproved indication [Unknown]
